FAERS Safety Report 14860852 (Version 2)
Quarter: 2018Q2

REPORT INFORMATION
  Report Type: Report from Study
  Country: US (occurrence: US)
  Receive Date: 20180508
  Receipt Date: 20180516
  Transmission Date: 20180711
  Serious: Yes (Other)
  Sender: FDA-Public Use
  Company Number: US-SA-2018SA106071

PATIENT
  Age: 57 Year
  Sex: Male

DRUGS (15)
  1. ALEVE [Concomitant]
     Active Substance: NAPROXEN SODIUM
     Dosage: 1 PO Q12 HOURS WITH TRAMADOL
     Route: 048
     Dates: end: 20171030
  2. CELECOXIB. [Concomitant]
     Active Substance: CELECOXIB
     Route: 065
     Dates: end: 20180330
  3. TRAMADOL HYDROCHLORIDE. [Concomitant]
     Active Substance: TRAMADOL HYDROCHLORIDE
     Dosage: 1 PO Q12 HOURS QITH ALEVE
     Route: 048
     Dates: end: 20171030
  4. BACLOFEN. [Concomitant]
     Active Substance: BACLOFEN
     Route: 048
     Dates: end: 20180330
  5. TAMSULOSIN HYDROCHLORIDE. [Concomitant]
     Active Substance: TAMSULOSIN HYDROCHLORIDE
     Dosage: FREQUENCY: QHS
     Route: 065
     Dates: end: 20171030
  6. ADDERALL [Concomitant]
     Active Substance: AMPHETAMINE ASPARTATE\AMPHETAMINE SULFATE\DEXTROAMPHETAMINE SACCHARATE\DEXTROAMPHETAMINE SULFATE
     Dosage: 1 Q AM+ 1NOON IF NEEDED
     Route: 065
     Dates: end: 20180327
  7. MELATONIN [Concomitant]
     Active Substance: MELATONIN
     Dosage: FREQUENCY: QHS
     Route: 065
     Dates: end: 20171030
  8. PREDNISOLONE. [Concomitant]
     Active Substance: PREDNISOLONE
     Route: 065
  9. CLEMASTINE FUMARATE. [Concomitant]
     Active Substance: CLEMASTINE FUMARATE
     Dosage: 1 PO QHS X1 WEEK THEN 1 PO BID X 3 WEEKS
     Route: 048
     Dates: end: 20180330
  10. DUTASTERIDE. [Concomitant]
     Active Substance: DUTASTERIDE
     Dosage: FREQUENCY: QHS
     Route: 065
     Dates: end: 20171030
  11. BISOPROLOL/HYDROCHLOROTHIAZIDE [Concomitant]
     Route: 065
     Dates: end: 20171030
  12. LEMTRADA [Suspect]
     Active Substance: ALEMTUZUMAB
     Indication: RELAPSING-REMITTING MULTIPLE SCLEROSIS
     Route: 041
     Dates: start: 20161031, end: 20161102
  13. AMPYRA [Concomitant]
     Active Substance: DALFAMPRIDINE
     Route: 048
     Dates: end: 20170417
  14. LOPERAMIDE HYDROCHLORIDE. [Concomitant]
     Active Substance: LOPERAMIDE HYDROCHLORIDE
     Route: 065
     Dates: end: 20171030
  15. LISINOPRIL. [Concomitant]
     Active Substance: LISINOPRIL
     Route: 065
     Dates: end: 20180330

REACTIONS (2)
  - Autoimmune disorder [Unknown]
  - Immune thrombocytopenic purpura [Recovered/Resolved]

NARRATIVE: CASE EVENT DATE: 20171127
